FAERS Safety Report 7653188 (Version 2)
Quarter: 2014Q2

REPORT INFORMATION
  Report Type: Spontaneous
  Country: None (occurrence: None)
  Receive Date: 20101007
  Receipt Date: 20140415
  Transmission Date: 20141212
  Serious: Yes (Death, Life-Threatening, Other)
  Sender: FDA-Public Use
  Company Number: AUR-APU-2010-02444

PATIENT
  Age: 37 Year
  Sex: Female

DRUGS (3)
  1. VENLAFAXINE (VENLAFAXINE) [Suspect]
     Indication: PRODUCT USED FOR UNKNOWN INDICATION
  2. CLOZAPINE [Suspect]
     Indication: PRODUCT USED FOR UNKNOWN INDICATION
     Dosage: 600 MG (1 D), UNKNOWN
  3. DIHYDROCODEINE [Suspect]
     Indication: PRODUCT USED FOR UNKNOWN INDICATION
     Dosage: 450MG

REACTIONS (9)
  - Abdominal pain upper [None]
  - Diarrhoea [None]
  - Hepatic steatosis [None]
  - Hepatic necrosis [None]
  - Toxicity to various agents [None]
  - Somnolence [None]
  - Hepatic failure [None]
  - Gastrointestinal hypomotility [None]
  - Somnolence [None]
